FAERS Safety Report 8591950-3 (Version None)
Quarter: 2012Q3

REPORT INFORMATION
  Report Type: 
  Country: None (occurrence: None)
  Receive Date: 20120814
  Receipt Date: 20120809
  Transmission Date: 20120928
  Serious: Yes (Hospitalization)
  Sender: FDA-Public Use
  Company Number: US-PFIZER INC-2012194686

PATIENT
  Age: 45 Year
  Sex: Female

DRUGS (2)
  1. XALKORI [Suspect]
     Indication: LUNG NEOPLASM MALIGNANT
     Dosage: UNK
  2. XALKORI [Suspect]
     Indication: TYROSINE KINASE MUTATION

REACTIONS (2)
  - DYSPNOEA [None]
  - RESPIRATORY DISORDER [None]
